FAERS Safety Report 20938314 (Version 1)
Quarter: 2022Q2

REPORT INFORMATION
  Report Type: Spontaneous
  Country: US (occurrence: US)
  Receive Date: 20220609
  Receipt Date: 20220609
  Transmission Date: 20220720
  Serious: Yes (Other)
  Sender: FDA-Public Use
  Company Number: US-ADVANZ PHARMA-202206003376

PATIENT

DRUGS (1)
  1. PILOCARPINE [Suspect]
     Active Substance: PILOCARPINE
     Indication: Presbyopia
     Dosage: UNK (PILOCARPINE 1.25% DROPS)

REACTIONS (2)
  - Retinal detachment [Unknown]
  - Vitreous detachment [Unknown]
